FAERS Safety Report 10570512 (Version 1)
Quarter: 2014Q4

REPORT INFORMATION
  Report Type: Spontaneous
  Country: US (occurrence: US)
  Receive Date: 20141107
  Receipt Date: 20141107
  Transmission Date: 20150529
  Serious: Yes (Other)
  Sender: FDA-Public Use
  Company Number: US-BAYER-2014-163255

PATIENT
  Age: 20 Year
  Sex: Female

DRUGS (5)
  1. COMPAZINE [Concomitant]
     Active Substance: PROCHLORPERAZINE MALEATE
     Indication: HEADACHE
  2. VICODIN [Concomitant]
     Active Substance: ACETAMINOPHEN\HYDROCODONE BITARTRATE
  3. YAZ [Suspect]
     Active Substance: DROSPIRENONE\ETHINYL ESTRADIOL
  4. GIANVI [Suspect]
     Active Substance: DROSPIRENONE\ETHINYL ESTRADIOL
  5. IUD NOS [Concomitant]
     Active Substance: COPPER OR LEVONORGESTREL
     Dosage: UNK
     Dates: start: 20110623

REACTIONS (5)
  - Intracranial venous sinus thrombosis [Recovered/Resolved]
  - Superior sagittal sinus thrombosis [None]
  - Cerebral venous thrombosis [None]
  - Transverse sinus thrombosis [None]
  - Jugular vein thrombosis [None]

NARRATIVE: CASE EVENT DATE: 20110519
